FAERS Safety Report 8601387-6 (Version None)
Quarter: 2012Q3

REPORT INFORMATION
  Report Type: 
  Country: None (occurrence: None)
  Receive Date: 20120817
  Receipt Date: 20120813
  Transmission Date: 20120928
  Serious: Yes (Other)
  Sender: FDA-Public Use
  Company Number: US-PFIZER INC-2012197574

PATIENT

DRUGS (1)
  1. NEURONTIN [Suspect]
     Indication: EPILEPSY
     Dosage: UNK

REACTIONS (3)
  - NEPHROLITHIASIS [None]
  - BRAIN INJURY [None]
  - EPILEPSY [None]
